FAERS Safety Report 19509234 (Version 2)
Quarter: 2021Q3

REPORT INFORMATION
  Report Type: Report from Study
  Country: US (occurrence: US)
  Receive Date: 20210709
  Receipt Date: 20210715
  Transmission Date: 20211014
  Serious: Yes (Hospitalization)
  Sender: FDA-Public Use
  Company Number: US-TAIHO ONCOLOGY  INC-EU-2021-02027

PATIENT
  Age: 62 Year
  Sex: Male
  Weight: 114.14 kg

DRUGS (32)
  1. LONSURF [Suspect]
     Active Substance: TIPIRACIL HYDROCHLORIDE\TRIFLURIDINE
     Indication: APPENDIX CANCER
  2. MORPHINE SULFATE ER [Concomitant]
     Active Substance: MORPHINE SULFATE
     Route: 048
     Dates: start: 20210128
  3. PROCHLORPERAZINE MALEATE. [Concomitant]
     Active Substance: PROCHLORPERAZINE MALEATE
     Dosage: PRN
     Route: 048
     Dates: start: 20181217
  4. METRONIDAZOLE. [Concomitant]
     Active Substance: METRONIDAZOLE
     Route: 048
     Dates: start: 20190219, end: 20190226
  5. LONSURF [Suspect]
     Active Substance: TIPIRACIL HYDROCHLORIDE\TRIFLURIDINE
     Indication: ADENOCARCINOMA OF APPENDIX
     Dosage: CYCLE UNKNOWN
     Route: 048
     Dates: start: 20210525
  6. AMLODIPINE BESYLATE. [Concomitant]
     Active Substance: AMLODIPINE BESYLATE
     Route: 048
     Dates: start: 20210128
  7. NEURONTIN [Concomitant]
     Active Substance: GABAPENTIN
     Route: 048
  8. OXYCODONE HYDROCHLORIDE. [Concomitant]
     Active Substance: OXYCODONE HYDROCHLORIDE
     Dosage: PRN
     Route: 048
  9. DEXAMETHASONE SODIUM PHOSPHATE. [Concomitant]
     Active Substance: DEXAMETHASONE SODIUM PHOSPHATE
     Dosage: 4 MG/ML
     Route: 042
     Dates: start: 20190122, end: 20210114
  10. HYDROCODONE?ACETAMINOPHEN [Concomitant]
     Active Substance: ACETAMINOPHEN\HYDROCODONE
     Dosage: 10?325 MG, PRN
     Route: 048
     Dates: end: 20210309
  11. LONSURF [Suspect]
     Active Substance: TIPIRACIL HYDROCHLORIDE\TRIFLURIDINE
     Indication: COLON CANCER
     Dosage: CYCLE 1, DOSE AND FREQUENCY UNKNOWN
     Route: 048
     Dates: start: 20210319
  12. XELODA [Concomitant]
     Active Substance: CAPECITABINE
     Route: 048
     Dates: start: 20200811, end: 20210625
  13. RESTASIS [Concomitant]
     Active Substance: CYCLOSPORINE
     Route: 047
     Dates: end: 20181217
  14. OXYCODONE HYDROCHLORIDE. [Concomitant]
     Active Substance: OXYCODONE HYDROCHLORIDE
     Route: 048
     Dates: start: 20201123
  15. GABAPENTIN. [Concomitant]
     Active Substance: GABAPENTIN
     Route: 048
     Dates: start: 20190609
  16. ONDANSETRON HCL [Concomitant]
     Active Substance: ONDANSETRON HYDROCHLORIDE
     Dosage: (OF 40 MG/20ML)
     Route: 042
     Dates: start: 20200921, end: 20210114
  17. MORPHINE SULFATE ER [Concomitant]
     Active Substance: MORPHINE SULFATE
     Route: 048
  18. TRAZODONE HYDROCHLORIDE. [Concomitant]
     Active Substance: TRAZODONE HYDROCHLORIDE
     Dosage: PRN, AT BED TIME
     Route: 048
  19. FAMOTIDINE. [Concomitant]
     Active Substance: FAMOTIDINE
     Route: 042
     Dates: start: 20190122, end: 20190723
  20. NORCO [Concomitant]
     Active Substance: ACETAMINOPHEN\HYDROCODONE BITARTRATE
     Dosage: 10?325 MG
     Route: 048
     Dates: start: 20181217, end: 20200730
  21. PALONOSETRON HCL [Concomitant]
     Active Substance: PALONOSETRON HYDROCHLORIDE
     Dosage: SOLUTION
     Route: 042
     Dates: start: 20190122, end: 20190723
  22. AMITRIPTYLINE HCL [Concomitant]
     Active Substance: AMITRIPTYLINE
     Dosage: AT BED TIME
     Route: 048
     Dates: start: 20210128
  23. SILDENAFIL CITRATE. [Concomitant]
     Active Substance: SILDENAFIL CITRATE
     Dosage: PRN
     Route: 048
     Dates: start: 20210128
  24. ATROPINE SULFATE. [Concomitant]
     Active Substance: ATROPINE SULFATE
     Dosage: SOLUTION
     Route: 042
     Dates: start: 20200921, end: 20210114
  25. HYDROCODONE?ACETAMINOPHEN [Concomitant]
     Active Substance: ACETAMINOPHEN\HYDROCODONE
     Dosage: 5?325 MG, PRN
     Route: 048
     Dates: end: 20181217
  26. PRAVACHOL [Concomitant]
     Active Substance: PRAVASTATIN SODIUM
     Route: 048
     Dates: end: 20190219
  27. DIPHENOXYLATE?ATROPINE [Concomitant]
     Active Substance: ATROPINE\DIPHENOXYLATE
     Dosage: 2.5?0.025 MG, PRN
     Route: 048
     Dates: start: 20190219, end: 20200730
  28. DURAGESIC [Concomitant]
     Active Substance: FENTANYL
     Dosage: 25 MCG/HR
     Route: 062
     Dates: start: 20190326, end: 20200730
  29. MS CONTIN [Concomitant]
     Active Substance: MORPHINE SULFATE
     Route: 048
     Dates: start: 20201001, end: 20210225
  30. OXYCODONE?ACETAMINOPHEN [Concomitant]
     Active Substance: ACETAMINOPHEN\OXYCODONE HYDROCHLORIDE
     Dosage: 10?325 MG, PRN
     Route: 048
     Dates: start: 20201001, end: 20210527
  31. QUESTRAN [Concomitant]
     Active Substance: CHOLESTYRAMINE
     Dosage: PACK
     Route: 048
     Dates: start: 20190312, end: 20200730
  32. CATHFLO ACTIVASE [Concomitant]
     Active Substance: ALTEPLASE
     Dates: start: 20201214, end: 20201214

REACTIONS (10)
  - Abdominal pain [Recovered/Resolved]
  - White blood cell count decreased [Unknown]
  - Haemoglobin decreased [Unknown]
  - Neutrophil count decreased [Unknown]
  - Nausea [Not Recovered/Not Resolved]
  - Memory impairment [Not Recovered/Not Resolved]
  - Haematocrit decreased [Unknown]
  - Complex regional pain syndrome [Unknown]
  - Weight decreased [Unknown]
  - Decreased appetite [Not Recovered/Not Resolved]

NARRATIVE: CASE EVENT DATE: 2021
